FAERS Safety Report 4669917-7 (Version None)
Quarter: 2005Q2

REPORT INFORMATION
  Report Type: 
  Country: None (occurrence: None)
  Receive Date: 20050523
  Receipt Date: 20050512
  Transmission Date: 20051028
  Serious: Yes (Hospitalization)
  Sender: FDA-Public Use
  Company Number: PHBS2005US06657

PATIENT
  Age: 67 Year
  Sex: Male
  Weight: 104 kg

DRUGS (5)
  1. SALAGEN [Suspect]
     Indication: SJOGREN'S SYNDROME
     Dosage: 20 MG/DAY
     Route: 048
     Dates: start: 19950101
  2. POTASSIUM CHLORIDE [Concomitant]
  3. ANTIHYPERTENSIVES [Concomitant]
  4. ANTIALLERGIC AGENTS, EXCL CORTICOSTEROIDS [Concomitant]
  5. MEDICATIONS FOR UNSPECIFIED STOMACH PROBLEMS [Concomitant]

REACTIONS (7)
  - DEHYDRATION [None]
  - DIFFICULTY IN WALKING [None]
  - DISORIENTATION [None]
  - DIZZINESS [None]
  - FALL [None]
  - HYPONATRAEMIA [None]
  - NIGHTMARE [None]
